FAERS Safety Report 9123077 (Version 1)
Quarter: 2013Q3

REPORT INFORMATION
  Report Type: Spontaneous
  Country: US (occurrence: None)
  Receive Date: 20130215
  Receipt Date: 20130215
  Transmission Date: 20140516
  Serious: Yes (Other)
  Sender: FDA-Public Use
  Company Number: None

PATIENT
  Age: 53 Year
  Sex: Female

DRUGS (5)
  1. ANTIOXIDANT DAY CREME SPF 20 [Suspect]
     Dosage: ONCE DERMAL
     Dates: start: 20130121
  2. AVOBENZONE\OCTINOXATE\OCTISALATE\OXYBENZONE [Suspect]
     Dosage: ONCE DERMAL
     Dates: start: 20130121
  3. VITAMIN A [Concomitant]
  4. VITAMIN C [Concomitant]
  5. VITAMIN D [Concomitant]

REACTIONS (2)
  - Eye irritation [None]
  - Skin discolouration [None]
